FAERS Safety Report 4747597-X (Version None)
Quarter: 2005Q3

REPORT INFORMATION
  Report Type: 
  Country: None (occurrence: None)
  Receive Date: 20050818
  Receipt Date: 20041203
  Transmission Date: 20060218
  Serious: Yes (Hospitalization)
  Sender: FDA-Public Use
  Company Number: US-BRISTOL-MYERS SQUIBB COMPANY-12783593

PATIENT
  Age: 86 Year
  Sex: Female
  Weight: 66 kg

DRUGS (18)
  1. TEQUIN [Suspect]
     Indication: LOCALISED INFECTION
     Dates: start: 20040701, end: 20040701
  2. PREVACID [Suspect]
     Dates: start: 20040701, end: 20040701
  3. PLAVIX [Suspect]
     Indication: HYPOAESTHESIA
     Route: 048
     Dates: start: 20040218
  4. PLAVIX [Suspect]
     Indication: CARDIOVASCULAR DISORDER
     Route: 048
     Dates: start: 20040218
  5. PROCRIT [Concomitant]
     Indication: ANAEMIA
     Route: 051
     Dates: start: 20000101
  6. ATENOLOL [Concomitant]
  7. IRON [Concomitant]
  8. ZANTAC [Concomitant]
  9. FOLIC ACID [Concomitant]
  10. ASPIRIN [Concomitant]
  11. ACIDOPHILUS [Concomitant]
     Dates: start: 20040901
  12. ASCORBIC ACID [Concomitant]
  13. VITAMIN E [Concomitant]
  14. VITAMIN B-12 [Concomitant]
  15. TUMS [Concomitant]
  16. MULTI-VITAMIN [Concomitant]
  17. MINERAL TAB [Concomitant]
  18. EQUALACTIN [Concomitant]

REACTIONS (6)
  - CONTUSION [None]
  - DIARRHOEA [None]
  - HAEMORRHAGE SUBCUTANEOUS [None]
  - MALAISE [None]
  - UPPER EXTREMITY MASS [None]
  - WEIGHT DECREASED [None]
